FAERS Safety Report 14323052 (Version 5)
Quarter: 2018Q3

REPORT INFORMATION
  Report Type: Spontaneous
  Country: DE (occurrence: DE)
  Receive Date: 20171226
  Receipt Date: 20180914
  Transmission Date: 20181010
  Serious: Yes (Life-Threatening, Hospitalization, Other)
  Sender: FDA-Public Use
  Company Number: DE-SUN PHARMACEUTICAL INDUSTRIES LTD-2017RR-157682

PATIENT
  Age: 30 Year
  Sex: Male

DRUGS (4)
  1. AMPICILLIN/SULBACTAM [Suspect]
     Active Substance: AMPICILLIN SODIUM\SULBACTAM SODIUM
     Indication: PERIODONTITIS
     Dosage: UNK
     Route: 065
  2. CIPROFLOXACIN. [Suspect]
     Active Substance: CIPROFLOXACIN
     Indication: PERIODONTITIS
     Dosage: 1 G, QD
     Route: 065
  3. BENZYLPENICILLIN [Suspect]
     Active Substance: PENICILLIN G
     Indication: PERIODONTITIS
     Dosage: UNK
     Route: 042
  4. AMOXICILLIN. [Suspect]
     Active Substance: AMOXICILLIN
     Indication: PERIODONTITIS
     Dosage: ()
     Route: 048

REACTIONS (11)
  - Conjunctivitis [Unknown]
  - Tachycardia [Recovered/Resolved]
  - Dyspnoea [Recovered/Resolved]
  - Renal impairment [Unknown]
  - Hypotension [Recovering/Resolving]
  - Hepatic enzyme increased [Unknown]
  - Tachypnoea [Recovered/Resolved]
  - Systemic inflammatory response syndrome [Unknown]
  - Oedema peripheral [Recovered/Resolved]
  - Acute generalised exanthematous pustulosis [Recovering/Resolving]
  - Hypervolaemia [Unknown]
